FAERS Safety Report 4306901-7 (Version None)
Quarter: 2004Q1

REPORT INFORMATION
  Report Type: 
  Country: None (occurrence: None)
  Receive Date: 20040227
  Receipt Date: 20040227
  Transmission Date: 20041129
  Serious: Yes (Other)
  Sender: FDA-Public Use
  Company Number: None

PATIENT
  Sex: Male
  Weight: 95.2554 kg

DRUGS (2)
  1. ZICAM [Suspect]
     Indication: NASOPHARYNGITIS
     Dosage: AS DIRECT MULTIPLE NASAL, AS DIRECT ONE APPLICATION NASAL
     Route: 045
     Dates: start: 20011110, end: 20020130
  2. ZICAM [Suspect]
     Indication: NASOPHARYNGITIS
     Dosage: AS DIRECT MULTIPLE NASAL, AS DIRECT ONE APPLICATION NASAL
     Route: 045
     Dates: start: 20020515, end: 20020516

REACTIONS (3)
  - ANOSMIA [None]
  - HYPOGEUSIA [None]
  - SINUS PAIN [None]
